FAERS Safety Report 6016751-1 (Version None)
Quarter: 2008Q4

REPORT INFORMATION
  Report Type: 
  Country: None (occurrence: None)
  Receive Date: 20081222
  Receipt Date: 20081215
  Transmission Date: 20090506
  Serious: Yes (Other)
  Sender: FDA-Public Use
  Company Number: DE-ROXANE LABORATORIES, INC.-2008-RO-00426RO

PATIENT

DRUGS (18)
  1. CYCLOPHOSPHAMIDE [Suspect]
     Indication: B-CELL LYMPHOMA
  2. DEXAMETHASONE [Suspect]
     Indication: B-CELL LYMPHOMA
  3. METHOTREXATE [Suspect]
     Indication: B-CELL LYMPHOMA
  4. RITUXIMAB [Suspect]
     Indication: B-CELL LYMPHOMA
  5. VINCRISTINE [Suspect]
     Indication: B-CELL LYMPHOMA
  6. IFOSFAMIDE [Suspect]
     Indication: B-CELL LYMPHOMA
  7. CYTARABINE [Suspect]
     Indication: B-CELL LYMPHOMA
  8. ETOPOSIDE [Suspect]
     Indication: B-CELL LYMPHOMA
  9. ADRIAMYCIN PFS [Suspect]
     Indication: B-CELL LYMPHOMA
  10. VINDESINE [Suspect]
     Indication: B-CELL LYMPHOMA
  11. RECONBINANT GRANULOCYTE COLONY SITMULATING FACTOR [Concomitant]
     Indication: NEUTROPENIA
  12. PALIFERMIN [Concomitant]
     Indication: STOMATITIS
  13. ANTIBIOTIC [Concomitant]
     Indication: INFECTION
  14. MORPHINE [Concomitant]
     Indication: ANALGESIC THERAPY
     Route: 042
  15. AMPHOTERICIN B [Concomitant]
     Indication: ANTIFUNGAL PROPHYLAXIS
  16. TETRACAINE POLYGYL STERILE OPHTHALMIC SOLUTION [Concomitant]
     Indication: STOMATITIS
  17. PANTHENOLE [Concomitant]
     Indication: STOMATITIS
  18. CAMOMILE-CONTAINING MOUTHWASHES [Concomitant]
     Indication: STOMATITIS

REACTIONS (2)
  - INFECTION [None]
  - STOMATITIS [None]
